FAERS Safety Report 9759607 (Version 2)
Quarter: 2015Q3

REPORT INFORMATION
  Report Type: Spontaneous
  Country: US (occurrence: US)
  Receive Date: 20131216
  Receipt Date: 20150805
  Transmission Date: 20151125
  Serious: Yes (Hospitalization)
  Sender: FDA-Public Use
  Company Number: US-GILEAD-2010-0028129

PATIENT
  Age: 22 Year
  Sex: Female
  Weight: 84.5 kg

DRUGS (8)
  1. LOVENOX [Concomitant]
     Active Substance: ENOXAPARIN SODIUM
  2. COUMADIN [Concomitant]
     Active Substance: WARFARIN SODIUM
  3. MOTRIN IB [Concomitant]
     Active Substance: IBUPROFEN
  4. LORTAB [Concomitant]
     Active Substance: ACETAMINOPHEN\HYDROCODONE BITARTRATE
  5. HYDROXYUREA. [Concomitant]
     Active Substance: HYDROXYUREA
  6. FOLIC ACID. [Concomitant]
     Active Substance: FOLIC ACID
  7. LETAIRIS [Suspect]
     Active Substance: AMBRISENTAN
     Indication: PULMONARY ARTERIAL HYPERTENSION
     Route: 048
     Dates: start: 20100210
  8. MULTIVITAMIN [Concomitant]
     Active Substance: VITAMINS

REACTIONS (1)
  - Dyspnoea [Unknown]

NARRATIVE: CASE EVENT DATE: 20100311
